FAERS Safety Report 15164501 (Version 2)
Quarter: 2018Q3

REPORT INFORMATION
  Report Type: Spontaneous
  Country: US (occurrence: US)
  Receive Date: 20180719
  Receipt Date: 20180719
  Transmission Date: 20181010
  Serious: No
  Sender: FDA-Public Use
  Company Number: US-BAUSCH-BL-2018-019377

PATIENT
  Age: 67 Year
  Sex: Female

DRUGS (1)
  1. JUBLIA [Suspect]
     Active Substance: EFINACONAZOLE
     Indication: PRODUCT USED FOR UNKNOWN INDICATION
     Dosage: HAD BEEN USING FOR 6 MONTHS
     Route: 065
     Dates: start: 201801

REACTIONS (1)
  - Application site erythema [Unknown]

NARRATIVE: CASE EVENT DATE: 2018
